FAERS Safety Report 6552638-3 (Version None)
Quarter: 2010Q1

REPORT INFORMATION
  Report Type: 
  Country: None (occurrence: None)
  Receive Date: 20100126
  Receipt Date: 20100121
  Transmission Date: 20100710
  Serious: Yes (Other)
  Sender: FDA-Public Use
  Company Number: A0841221A

PATIENT
  Age: 52 Year
  Sex: Female

DRUGS (9)
  1. ADVAIR [Suspect]
     Indication: CHRONIC OBSTRUCTIVE PULMONARY DISEASE
     Route: 065
  2. CHANTIX [Suspect]
     Dosage: 1MG TWICE PER DAY
     Dates: start: 20060101
  3. SPIRIVA [Suspect]
     Route: 055
  4. SYMBICORT [Suspect]
     Indication: CHRONIC OBSTRUCTIVE PULMONARY DISEASE
     Route: 055
  5. ANTIBIOTICS [Concomitant]
  6. PLAVIX [Concomitant]
  7. LEVOTHYROXINE SODIUM [Concomitant]
  8. METHADONE [Concomitant]
  9. ACETYLSALICYLIC ACID [Concomitant]

REACTIONS (9)
  - BRONCHITIS [None]
  - CHRONIC OBSTRUCTIVE PULMONARY DISEASE [None]
  - DYSPNOEA [None]
  - MALAISE [None]
  - NAUSEA [None]
  - ORAL CANDIDIASIS [None]
  - OROPHARYNGEAL PAIN [None]
  - SINUS OPERATION [None]
  - TONGUE COATED [None]
